FAERS Safety Report 19973813 (Version 2)
Quarter: 2021Q4

REPORT INFORMATION
  Report Type: Other
  Country: JP (occurrence: JP)
  Receive Date: 20211020
  Receipt Date: 20211217
  Transmission Date: 20220304
  Serious: Yes (Hospitalization, Other)
  Sender: FDA-Public Use
  Company Number: JP-CHUGAI-A2021006461ROCHE

PATIENT
  Age: 43 Year
  Sex: Male
  Weight: 88.5 kg

DRUGS (4)
  1. ENTRECTINIB [Suspect]
     Active Substance: ENTRECTINIB
     Indication: Non-small cell lung cancer
     Route: 048
     Dates: start: 20210210, end: 20210223
  2. ENTRECTINIB [Suspect]
     Active Substance: ENTRECTINIB
     Route: 048
     Dates: start: 20210302, end: 20210316
  3. ENTRECTINIB [Suspect]
     Active Substance: ENTRECTINIB
     Route: 048
     Dates: start: 20210322, end: 20210328
  4. NAPROXEN SODIUM [Concomitant]
     Active Substance: NAPROXEN SODIUM
     Route: 048

REACTIONS (8)
  - Vomiting [Recovering/Resolving]
  - Nausea [Recovering/Resolving]
  - Hepatic function abnormal [Recovering/Resolving]
  - Lymphangiosis carcinomatosa [Unknown]
  - Asthma [Unknown]
  - Headache [Unknown]
  - Malaise [Unknown]
  - Oedema peripheral [Unknown]

NARRATIVE: CASE EVENT DATE: 20210210
